FAERS Safety Report 24210532 (Version 1)
Quarter: 2024Q3

REPORT INFORMATION
  Report Type: Spontaneous
  Country: FI (occurrence: FI)
  Receive Date: 20240814
  Receipt Date: 20240814
  Transmission Date: 20241016
  Serious: Yes (Death, Other)
  Sender: JOHNSON AND JOHNSON
  Company Number: FI-JNJFOC-20240828746

PATIENT
  Age: 37 Year
  Sex: Male

DRUGS (2)
  1. YONDELIS [Interacting]
     Active Substance: TRABECTEDIN
     Indication: Synovial sarcoma
     Route: 065
  2. EMEND [Suspect]
     Active Substance: APREPITANT
     Indication: Prophylaxis of nausea and vomiting
     Route: 048

REACTIONS (5)
  - Renal disorder [Fatal]
  - Rhabdomyolysis [Fatal]
  - Hepatic function abnormal [Fatal]
  - Drug interaction [Unknown]
  - Liver function test increased [Unknown]
